FAERS Safety Report 18030220 (Version 1)
Quarter: 2020Q3

REPORT INFORMATION
  Report Type: Not Available
  Country: US (occurrence: US)
  Receive Date: 20200715
  Receipt Date: 20200715
  Transmission Date: 20201103
  Serious: Yes (Hospitalization)
  Sender: FDA-Public Use
  Company Number: US-C B FLEET CO INC-202007-US-002409

PATIENT
  Sex: Female

DRUGS (1)
  1. GOODYS EXTRA STRENGTH [Suspect]
     Active Substance: ACETAMINOPHEN\ASPIRIN\CAFFEINE
     Indication: PRODUCT USED FOR UNKNOWN INDICATION
     Dosage: DOSE UNKNOWN
     Route: 048

REACTIONS (5)
  - Gastric ulcer [Not Recovered/Not Resolved]
  - Drug dependence [Not Recovered/Not Resolved]
  - Inappropriate schedule of product administration [None]
  - Weight decreased [Unknown]
  - Pain [Not Recovered/Not Resolved]
